FAERS Safety Report 10013561 (Version 1)
Quarter: 2014Q1

REPORT INFORMATION
  Report Type: Spontaneous
  Country: PT (occurrence: PT)
  Receive Date: 20140315
  Receipt Date: 20140315
  Transmission Date: 20141002
  Serious: Yes (Other)
  Sender: FDA-Public Use
  Company Number: PT-ROCHE-1365816

PATIENT
  Age: 41 Year
  Sex: Female

DRUGS (2)
  1. XOLAIR [Suspect]
     Indication: ASTHMA
     Route: 065
     Dates: start: 20111021
  2. XOLAIR [Suspect]
     Indication: RHINITIS ALLERGIC

REACTIONS (2)
  - Stomatitis [Recovered/Resolved]
  - Gingival inflammation [Recovered/Resolved]
